FAERS Safety Report 20566688 (Version 1)
Quarter: 2022Q1

REPORT INFORMATION
  Report Type: Spontaneous
  Country: US (occurrence: None)
  Receive Date: 20220307
  Receipt Date: 20220307
  Transmission Date: 20220424
  Serious: Yes (Other)
  Sender: FDA-Public Use
  Company Number: None

PATIENT
  Age: 27 Year
  Sex: Female
  Weight: 76.5 kg

DRUGS (1)
  1. EVUSHELD [Suspect]
     Active Substance: CILGAVIMAB\TIXAGEVIMAB
     Indication: COVID-19 prophylaxis
     Dosage: OTHER FREQUENCY : ONCE;?
     Route: 030
     Dates: start: 20220303, end: 20220303

REACTIONS (7)
  - Fatigue [None]
  - Ocular hyperaemia [None]
  - Headache [None]
  - Stomatitis [None]
  - Systemic lupus erythematosus rash [None]
  - Systemic lupus erythematosus [None]
  - Pyrexia [None]

NARRATIVE: CASE EVENT DATE: 20220304
